FAERS Safety Report 4562696-3 (Version None)
Quarter: 2005Q1

REPORT INFORMATION
  Report Type: 
  Country: None (occurrence: None)
  Receive Date: 20050127
  Receipt Date: 20050119
  Transmission Date: 20050727
  Serious: Yes (Hospitalization, Other)
  Sender: FDA-Public Use
  Company Number: US-GLAXOSMITHKLINE-A0541240A

PATIENT
  Age: 26 Year
  Sex: Male
  Weight: 57 kg

DRUGS (2)
  1. GOODY'S EXTRA STRENGTH HEADACHE POWDER [Suspect]
     Indication: SINUS HEADACHE
     Route: 048
     Dates: start: 19940101
  2. WELLBUTRIN [Concomitant]
     Indication: SMOKING CESSATION THERAPY
     Route: 048
     Dates: start: 20040101

REACTIONS (7)
  - ABDOMINAL PAIN UPPER [None]
  - DEPENDENCE [None]
  - DRUG ABUSER [None]
  - DYSPEPSIA [None]
  - GASTRIC ULCER [None]
  - INTENTIONAL MISUSE [None]
  - TREATMENT NONCOMPLIANCE [None]
